FAERS Safety Report 25400204 (Version 1)
Quarter: 2025Q2

REPORT INFORMATION
  Report Type: Spontaneous
  Country: LV (occurrence: LV)
  Receive Date: 20250605
  Receipt Date: 20250605
  Transmission Date: 20250716
  Serious: Yes (Other)
  Sender: NOVARTIS
  Company Number: LV-002147023-NVSC2025LV063953

PATIENT
  Age: 47 Year
  Sex: Male

DRUGS (2)
  1. SCEMBLIX [Suspect]
     Active Substance: ASCIMINIB HYDROCHLORIDE
     Indication: Chronic myeloid leukaemia
     Dosage: 40 MG, Q12H
     Route: 048
     Dates: start: 20240324, end: 20250226
  2. SCEMBLIX [Suspect]
     Active Substance: ASCIMINIB HYDROCHLORIDE
     Dosage: 20 MG, Q12H
     Route: 048
     Dates: start: 20240324, end: 20250226

REACTIONS (4)
  - Diarrhoea [Recovered/Resolved with Sequelae]
  - Oedema [Recovered/Resolved with Sequelae]
  - Rash [Recovered/Resolved with Sequelae]
  - Splenomegaly [Recovered/Resolved with Sequelae]

NARRATIVE: CASE EVENT DATE: 20241115
